FAERS Safety Report 6045874-6 (Version None)
Quarter: 2009Q1

REPORT INFORMATION
  Report Type: 
  Country: None (occurrence: None)
  Receive Date: 20090121
  Receipt Date: 20090105
  Transmission Date: 20090719
  Serious: Yes (Death, Hospitalization)
  Sender: FDA-Public Use
  Company Number: GB-B.I. PHARMACEUTICALS,INC./RIDGEFIELD-2008-UK-01858UK

PATIENT
  Sex: Male

DRUGS (3)
  1. TIPRANAVIR+RITONAVIR CO-ADMIN (EU/1/05/315/001) [Suspect]
     Indication: HIV INFECTION
     Dosage: 1000MG
     Route: 048
     Dates: start: 20060427, end: 20080901
  2. TENOFOVIR [Concomitant]
     Dates: start: 20071101, end: 20081010
  3. STAVUDINE [Concomitant]
     Dosage: 80MG
     Dates: start: 20071101, end: 20081010

REACTIONS (2)
  - LIVER DISORDER [None]
  - VIRAL LOAD [None]
